FAERS Safety Report 14923623 (Version 1)
Quarter: 2018Q2

REPORT INFORMATION
  Report Type: Spontaneous
  Country: GB (occurrence: GB)
  Receive Date: 20180522
  Receipt Date: 20180522
  Transmission Date: 20180711
  Serious: Yes (Other)
  Sender: FDA-Public Use
  Company Number: GB-TEVA-2018-GB-895067

PATIENT
  Age: 81 Year
  Sex: Female
  Weight: 64 kg

DRUGS (14)
  1. ACETYLSALICYLIC ACID [Concomitant]
     Active Substance: ASPIRIN
     Dosage: 1 DOSAGE FORMS DAILY;
     Dates: start: 20171228
  2. ROSUVASTATIN. [Suspect]
     Active Substance: ROSUVASTATIN
     Route: 065
     Dates: start: 20180213
  3. LEVOTHYROXINE. [Concomitant]
     Active Substance: LEVOTHYROXINE
     Dosage: 1 DOSAGE FORMS DAILY; EACH MORNING
     Dates: start: 20171212
  4. FENBID [Concomitant]
     Active Substance: IBUPROFEN
     Dosage: 3 DOSAGE FORMS DAILY; APPLY
     Dates: start: 20180115, end: 20180125
  5. BETAHISTINE [Concomitant]
     Active Substance: BETAHISTINE
     Dosage: 2 DOSAGE FORMS DAILY;
     Dates: start: 20171212
  6. SERETIDE [Concomitant]
     Active Substance: FLUTICASONE PROPIONATE\SALMETEROL XINAFOATE
     Dosage: 4 DOSAGE FORMS DAILY;
     Route: 055
     Dates: start: 20171212
  7. LORATADINE. [Concomitant]
     Active Substance: LORATADINE
     Dosage: 1 DOSAGE FORMS DAILY;
     Dates: start: 20171228, end: 20180127
  8. LOSARTAN. [Concomitant]
     Active Substance: LOSARTAN
     Dosage: 1 DOSAGE FORMS DAILY;
     Dates: start: 20171212
  9. ALLOPURINOL. [Concomitant]
     Active Substance: ALLOPURINOL
     Dosage: 2 DOSAGE FORMS DAILY;
     Dates: start: 20171212
  10. ATORVASTATIN [Concomitant]
     Active Substance: ATORVASTATIN
     Dosage: 1 DOSAGE FORMS DAILY;
     Dates: start: 20171212, end: 20180213
  11. ESTRADIOL. [Concomitant]
     Active Substance: ESTRADIOL
     Dosage: USE AS DIRECTED
     Dates: start: 20180201
  12. LACTULOSE. [Concomitant]
     Active Substance: LACTULOSE
     Dosage: 30 ML DAILY;
     Dates: start: 20171228, end: 20180107
  13. VENTOLIN [Concomitant]
     Active Substance: ALBUTEROL SULFATE
     Route: 055
     Dates: start: 20171212
  14. EZETIMIBE. [Concomitant]
     Active Substance: EZETIMIBE
     Dosage: 1 DOSAGE FORMS DAILY;
     Dates: start: 20171212

REACTIONS (1)
  - Anaphylactic reaction [Recovered/Resolved]

NARRATIVE: CASE EVENT DATE: 20180313
